FAERS Safety Report 23859239 (Version 1)
Quarter: 2024Q2

REPORT INFORMATION
  Report Type: Spontaneous
  Country: US (occurrence: US)
  Receive Date: 20240515
  Receipt Date: 20240515
  Transmission Date: 20240716
  Serious: No
  Sender: FDA-Public Use
  Company Number: US-GLENMARK PHARMACEUTICALS-2024GMK089533

PATIENT

DRUGS (2)
  1. TACROLIMUS [Suspect]
     Active Substance: TACROLIMUS
     Indication: Product used for unknown indication
     Dosage: UNK, QD
     Route: 061
     Dates: start: 20230227
  2. TEARDROPS [Concomitant]
     Indication: Eye lubrication therapy
     Dosage: UNK, TID, EYE DROPS 3 TIMES DAILY

REACTIONS (3)
  - Product use issue [Unknown]
  - Product leakage [Unknown]
  - Product container seal issue [Unknown]

NARRATIVE: CASE EVENT DATE: 20240101
